FAERS Safety Report 7945066-7 (Version None)
Quarter: 2011Q4

REPORT INFORMATION
  Report Type: 
  Country: None (occurrence: None)
  Receive Date: 20111129
  Receipt Date: 20111123
  Transmission Date: 20120403
  Serious: Yes (Hospitalization, Other)
  Sender: FDA-Public Use
  Company Number: SE-PFIZER INC-2011247349

PATIENT
  Age: 45 Year
  Sex: Male

DRUGS (5)
  1. ALPRAZOLAM [Concomitant]
     Dosage: UNK
  2. METADON [Concomitant]
     Dosage: UNK
  3. ASPIRIN [Concomitant]
     Dosage: UNK
  4. IMOVANE [Concomitant]
     Dosage: UNK
  5. LYRICA [Suspect]
     Dosage: 5 G, SINGLE
     Route: 048
     Dates: start: 20110930, end: 20110930

REACTIONS (4)
  - POISONING [None]
  - OVERDOSE [None]
  - RHABDOMYOLYSIS [None]
  - RENAL FAILURE ACUTE [None]
